FAERS Safety Report 7792683 (Version 4)
Quarter: 2013Q2

REPORT INFORMATION
  Report Type: Spontaneous
  Country: JP (occurrence: JP)
  Receive Date: 20110131
  Receipt Date: 20130510
  Transmission Date: 20140414
  Serious: Yes (Other)
  Sender: FDA-Public Use
  Company Number: JP-ROCHE-703424

PATIENT
  Sex: Female

DRUGS (3)
  1. AVASTIN [Suspect]
     Indication: LUNG ADENOCARCINOMA
     Route: 041
  2. CARBOPLATIN [Suspect]
     Indication: LUNG ADENOCARCINOMA
     Route: 041
     Dates: start: 201004
  3. PACLITAXEL [Suspect]
     Indication: LUNG ADENOCARCINOMA
     Route: 041
     Dates: start: 201004

REACTIONS (3)
  - Aortitis [Recovering/Resolving]
  - Antineutrophil cytoplasmic antibody increased [Recovering/Resolving]
  - Neutropenia [Unknown]
